FAERS Safety Report 6039350-4 (Version None)
Quarter: 2009Q1

REPORT INFORMATION
  Report Type: 
  Country: None (occurrence: None)
  Receive Date: 20090114
  Receipt Date: 20090107
  Transmission Date: 20090719
  Serious: Yes (Other)
  Sender: FDA-Public Use
  Company Number: GXKR2009DE00473

PATIENT
  Age: 55 Year
  Sex: Female

DRUGS (1)
  1. AMOXICILLIN AND CLAVULANATE POTASSIUM [Suspect]
     Dosage: 375 MG, ONCE/SINGLE, ORAL; 750 MG, ONCE/SINGLE, ORAL
     Route: 048

REACTIONS (6)
  - CONFUSIONAL STATE [None]
  - DISORIENTATION [None]
  - MANIA [None]
  - PARANOIA [None]
  - PSYCHOTIC DISORDER [None]
  - SPEECH DISORDER [None]
